FAERS Safety Report 22848303 (Version 8)
Quarter: 2024Q4

REPORT INFORMATION
  Report Type: Report from Study
  Country: US (occurrence: US)
  Receive Date: 20230822
  Receipt Date: 20241226
  Transmission Date: 20250115
  Serious: Yes (Hospitalization, Other)
  Sender: UCB
  Company Number: US-UCBSA-2023025701

PATIENT
  Age: 25 Year
  Sex: Female
  Weight: 44.5 kg

DRUGS (33)
  1. FINTEPLA [Suspect]
     Active Substance: FENFLURAMINE
     Indication: Lennox-Gastaut syndrome
     Dosage: 4 MILLILITER, 2X/DAY (BID)
     Route: 048
     Dates: start: 20221108
  2. FINTEPLA [Suspect]
     Active Substance: FENFLURAMINE
     Indication: Severe myoclonic epilepsy of infancy
     Dosage: 2 MILLILITER, 2X/DAY (BID)
     Route: 048
  3. FINTEPLA [Suspect]
     Active Substance: FENFLURAMINE
     Dosage: 2 MILLILITER, 2X/DAY (BID)
     Route: 048
     Dates: start: 20221201
  4. FINTEPLA [Suspect]
     Active Substance: FENFLURAMINE
     Dosage: 13 MILLIGRAM DAILY NOW ON 8.8 MG/DAY
     Route: 048
     Dates: start: 20231031
  5. FINTEPLA [Suspect]
     Active Substance: FENFLURAMINE
     Dosage: 2 MILLILITER, 2X/DAY (BID)
  6. TYLENOL [Concomitant]
     Active Substance: ACETAMINOPHEN
     Indication: Pain
     Dosage: 1000 MILLIGRAM, AS NEEDED
  7. ZYRTEC [Concomitant]
     Active Substance: CETIRIZINE HYDROCHLORIDE
     Indication: Product used for unknown indication
     Dosage: SOLUTION
     Route: 048
  8. VITAMIN D3 [Concomitant]
     Active Substance: CHOLECALCIFEROL
     Indication: Product used for unknown indication
     Dosage: 1,000 UNITS DAILY
  9. CLEOCIN T [Concomitant]
     Active Substance: CLINDAMYCIN PHOSPHATE
     Indication: Product used for unknown indication
     Dosage: LOTION, APPLY 1 APPLICATION TOPICALLY DAILY. APPLIED TO  FACE AND BACK DAILY
     Route: 061
  10. ONFI [Concomitant]
     Active Substance: CLOBAZAM
     Indication: Product used for unknown indication
     Dosage: 3.25 MILLILITER, 3X/DAY (TID) ML SUSPENSION, TAKE 3.25 MLS BY PER G TUBE ROUTE 3 (THREE)  TIMES DAIL
  11. BENADRYL [Concomitant]
     Active Substance: DIPHENHYDRAMINE HYDROCHLORIDE
     Indication: Product used for unknown indication
     Dosage: LIQUID AS NEEDED
  12. EPIPEN [Concomitant]
     Active Substance: EPINEPHRINE
     Indication: Anaphylactic reaction
     Dosage: INJECTION SYRINGE, AS NEEDED
  13. HIZENTRA [Concomitant]
     Active Substance: HUMAN IMMUNOGLOBULIN G
     Indication: Product used for unknown indication
     Dosage: 1 GRAM, WEEKLY (QW)
     Route: 058
  14. HIZENTRA [Concomitant]
     Active Substance: HUMAN IMMUNOGLOBULIN G
     Dosage: 9 GRAM, WEEKLY (QW) INJECT TOTAL OF 45ML
     Route: 058
  15. HIZENTRA [Concomitant]
     Active Substance: HUMAN IMMUNOGLOBULIN G
     Dosage: 4  GM ONE DAY AND THEN 5 GM ANOTHER DAY DURING THE WEEK
  16. LACTASE [Concomitant]
     Active Substance: LACTASE
     Indication: Product used for unknown indication
     Dosage: ADMINISTER 1 TABLET VIA GASTRIC TUBE AS NEEDED.
  17. LACTOBACILLUS ACIDOPHILUS [Concomitant]
     Active Substance: LACTOBACILLUS ACIDOPHILUS
     Indication: Product used for unknown indication
     Dosage: TAKE 1 CAPSULE BY MOUTH DAILY.
     Route: 048
  18. LAMICTAL ODT [Concomitant]
     Active Substance: LAMOTRIGINE
     Indication: Product used for unknown indication
     Dosage: TAKE 200 MG AT 6:30 AM  200 AT 2:30 PM AND 300 MG AT 10:30 PM
  19. EMLA [Concomitant]
     Active Substance: LIDOCAINE\PRILOCAINE
     Indication: Pain
     Dosage: , APPLY 1 APPLICATION TOPICALLY AS NEEDED
     Route: 061
  20. ROSADAN [Concomitant]
     Active Substance: METRONIDAZOLE
     Indication: Product used for unknown indication
     Dosage: APPLY 1 APPLICATION TOPICALLY
     Route: 061
  21. MINOCYCLINE [Concomitant]
     Active Substance: MINOCYCLINE HYDROCHLORIDE
     Indication: Product used for unknown indication
     Dosage: 100 MILLIGRAM 2 (TWO)  TIMES A DAY BEFORE BREAKFAST AND DINNER
     Route: 048
  22. BACTROBAN [Concomitant]
     Active Substance: MUPIROCIN CALCIUM
     Indication: Product used for unknown indication
     Dosage: APPLY 1 APPLICATION TOPICALLY AS NEEDED
     Route: 048
  23. OMEPRAZOLE [Concomitant]
     Active Substance: OMEPRAZOLE
     Indication: Product used for unknown indication
     Dosage: 40 MILLIGRAM EVERY MORNING BEFORE BREAKFAST
     Route: 048
  24. MIRALAX [Concomitant]
     Active Substance: POLYETHYLENE GLYCOL 3350
     Indication: Product used for unknown indication
     Dosage: 17 GRAM/DOSE ORAL POWDER, DAILY
     Route: 048
  25. CYTRA-K [Concomitant]
     Active Substance: CITRIC ACID MONOHYDRATE\POTASSIUM CITRATE
     Indication: Product used for unknown indication
     Dosage: 7.5 MILLILITER, 3X/DAY (TID), TAKE 7.5 MLS BY  MOUTH 3 (THREE) TIMES DAILY WITH MEALS
     Route: 048
  26. TOPAMAX [Concomitant]
     Active Substance: TOPIRAMATE
     Indication: Product used for unknown indication
     Dosage: 3 TABS AM, 3 TABS AFTERNOON, 4 TABS AT NIGHT, SCHEDULE 0600, 1400, 2200
  27. VALTOCO [Concomitant]
     Active Substance: DIAZEPAM
     Indication: Seizure
     Dosage: ADMINISTER 1  SPRAY (7.5 MG TOTAL) INTO NOSTRIL(S) AS NEEDED FOR SEIZURES (2 OR MORE SEIZURES IN LES
     Route: 045
  28. DEXTRIN\WHEAT [Concomitant]
     Active Substance: ICODEXTRIN\WHEAT
     Indication: Product used for unknown indication
     Dosage: 3 GRAM/3.5 GRAM PACKET, 1 PACKET BY GASTRIC TUBE ROUTE  DAILY.
  29. RETINO A [Concomitant]
     Indication: Product used for unknown indication
     Dosage: APPLY TOPICALLY AS NEEDED. PLACE A SMALL AMOUNT TO AFFECTED AREA AT BEDTIME, WASH OFF IN THE MORNING
     Route: 061
  30. CALCIUM [Concomitant]
     Active Substance: CALCIUM
     Indication: Product used for unknown indication
     Dosage: UNK
  31. POTASSIUM [Concomitant]
     Active Substance: POTASSIUM
     Indication: Product used for unknown indication
     Dosage: UNK
  32. CITRATE [Concomitant]
     Active Substance: CITRIC ACID MONOHYDRATE
     Indication: Product used for unknown indication
     Dosage: UNK
  33. ASPIRIN [Concomitant]
     Active Substance: ASPIRIN
     Indication: Product used for unknown indication
     Dosage: UNK

REACTIONS (12)
  - Atrial septal defect repair [Recovered/Resolved]
  - Annuloplasty [Unknown]
  - Right atrial dilatation [Not Recovered/Not Resolved]
  - Right ventricular dilatation [Not Recovered/Not Resolved]
  - Pulmonary valve incompetence [Unknown]
  - Tricuspid valve incompetence [Unknown]
  - Mitral valve incompetence [Unknown]
  - Right ventricular systolic pressure increased [Unknown]
  - Ventricular hypokinesia [Unknown]
  - Right ventricular dysfunction [Unknown]
  - Atrial septal defect [Not Recovered/Not Resolved]
  - Pulmonary arterial pressure increased [Not Recovered/Not Resolved]

NARRATIVE: CASE EVENT DATE: 20230511
